FAERS Safety Report 8508358-9 (Version None)
Quarter: 2012Q3

REPORT INFORMATION
  Report Type: 
  Country: None (occurrence: None)
  Receive Date: 20120713
  Receipt Date: 20120706
  Transmission Date: 20120928
  Serious: Yes (Other)
  Sender: FDA-Public Use
  Company Number: PHHY2012BR059662

PATIENT
  Sex: Female

DRUGS (1)
  1. FORMOTEROL FUMARATE [Suspect]
     Dosage: 12/400MCG

REACTIONS (5)
  - COUGH [None]
  - CHEST PAIN [None]
  - BRONCHOPULMONARY DISEASE [None]
  - FATIGUE [None]
  - MALAISE [None]
